FAERS Safety Report 4399614-7 (Version None)
Quarter: 2004Q3

REPORT INFORMATION
  Report Type: 
  Country: None (occurrence: None)
  Receive Date: 20040712
  Receipt Date: 20040326
  Transmission Date: 20050211
  Serious: Yes (Death, Life-Threatening, Hospitalization)
  Sender: FDA-Public Use
  Company Number: 2003-BP-07184PF

PATIENT
  Age: 65 Year
  Sex: Male

DRUGS (4)
  1. SPIRIVA [Suspect]
     Indication: CHRONIC OBSTRUCTIVE AIRWAYS DISEASE
     Dosage: 18 MCG, 1 PUFF DAILY), INHALATION
     Route: 055
  2. VACCINE AGAINST PNEUMOCOCCUS [Suspect]
     Dosage: ONCE
     Dates: start: 20030718, end: 20030718
  3. COMBIVENT [Concomitant]
  4. CORTICIODS [Concomitant]

REACTIONS (3)
  - BRONCHOSPASM [None]
  - RESPIRATORY ARREST [None]
  - THERAPY NON-RESPONDER [None]
